FAERS Safety Report 8898921 (Version 1)
Quarter: 2012Q4

REPORT INFORMATION
  Report Type: 
  Country: US (occurrence: US)
  Receive Date: 20121109
  Receipt Date: 20121109
  Transmission Date: 20130627
  Serious: Yes (Hospitalization)
  Sender: FDA-Public Use
  Company Number: US-BAYER-2012-116584

PATIENT
  Age: 47 Year
  Sex: Female
  Weight: 79.37 kg

DRUGS (2)
  1. YASMIN [Suspect]
  2. HYDROCHLOROTHIAZID [Concomitant]
     Indication: HYPERTENSION

REACTIONS (1)
  - Deep vein thrombosis [None]
